FAERS Safety Report 6381553-3 (Version None)
Quarter: 2009Q3

REPORT INFORMATION
  Report Type: 
  Country: None (occurrence: None)
  Receive Date: 20090925
  Receipt Date: 20090910
  Transmission Date: 20100115
  Serious: Yes (Hospitalization)
  Sender: FDA-Public Use
  Company Number: 8051902

PATIENT
  Age: 31 Year
  Sex: Female
  Weight: 68.4 kg

DRUGS (9)
  1. CDP870 400 MG [Suspect]
     Indication: RHEUMATOID ARTHRITIS
     Dosage: 400 MG 1/2W SC
     Route: 058
     Dates: start: 20050810, end: 20060725
  2. CDP870 400 MG [Suspect]
     Indication: RHEUMATOID ARTHRITIS
     Dosage: 200 MG 1/2W SC
     Route: 058
     Dates: start: 20060809, end: 20090831
  3. METHOTREXATE [Concomitant]
  4. MEDROL [Concomitant]
  5. FOLIC ACID [Concomitant]
  6. DIANE 35 [Concomitant]
  7. CANEPHRON /00996401/ [Concomitant]
  8. ISONIAZID [Concomitant]
  9. PYRIDOXINE [Concomitant]

REACTIONS (4)
  - BODY TEMPERATURE INCREASED [None]
  - DRUG INEFFECTIVE [None]
  - HEADACHE [None]
  - SINUSITIS [None]
